FAERS Safety Report 7911463-9 (Version None)
Quarter: 2011Q4

REPORT INFORMATION
  Report Type: 
  Country: None (occurrence: None)
  Receive Date: 20111114
  Receipt Date: 20111031
  Transmission Date: 20120403
  Serious: Yes (Hospitalization)
  Sender: FDA-Public Use
  Company Number: CA-MYLANLABS-2011S1022855

PATIENT
  Age: 19 Month
  Sex: Female

DRUGS (7)
  1. CYCLOPHOSPHAMIDE [Suspect]
     Indication: BRAIN NEOPLASM MALIGNANT
     Dosage: 60 MG/KG/DAY, 2 DAYS
     Route: 065
  2. CISPLATIN [Suspect]
     Indication: BRAIN NEOPLASM MALIGNANT
     Dosage: 3.5 MG/KG, 1 DOSE
     Route: 065
  3. VINCRISTINE [Suspect]
     Indication: BRAIN NEOPLASM MALIGNANT
     Dosage: 0.05 MG/KG/DAY, 2 DOSES
     Route: 065
  4. CARBOPLATIN [Suspect]
     Indication: BRAIN NEOPLASM MALIGNANT
     Dosage: HIGH-DOSE: 17 MG/KG/DAY, 2 DAYS
     Route: 065
  5. THIOTEPA [Suspect]
     Indication: BRAIN NEOPLASM MALIGNANT
     Dosage: 10 MG/KG/DAY, 2 DOSES
     Route: 065
  6. ETOPOSIDE [Suspect]
     Indication: BRAIN NEOPLASM MALIGNANT
     Dosage: 2.5 MG/KG/DAY, 3 DAYS
     Route: 065
  7. METHOTREXATE [Suspect]
     Indication: BRAIN NEOPLASM MALIGNANT
     Dosage: HIGH DOSE: 8G/M2, 2 CYCLES
     Route: 065

REACTIONS (3)
  - DEAFNESS [None]
  - SEPSIS [None]
  - LEUKOENCEPHALOPATHY [None]
